FAERS Safety Report 9792824 (Version 1)
Quarter: 2014Q1

REPORT INFORMATION
  Report Type: Report from Study
  Country: US (occurrence: US)
  Receive Date: 20140102
  Receipt Date: 20140102
  Transmission Date: 20141002
  Serious: No
  Sender: FDA-Public Use
  Company Number: US-SANOFI-AVENTIS-2013SA041210

PATIENT
  Age: 50 Year
  Sex: Female
  Weight: 63.5 kg

DRUGS (1)
  1. AUBAGIO [Suspect]
     Indication: MULTIPLE SCLEROSIS
     Route: 048
     Dates: start: 20130412

REACTIONS (5)
  - Fatigue [Not Recovered/Not Resolved]
  - Condition aggravated [Not Recovered/Not Resolved]
  - Eating disorder [Unknown]
  - Cognitive disorder [Not Recovered/Not Resolved]
  - Weight decreased [Unknown]
